FAERS Safety Report 20089064 (Version 1)
Quarter: 2021Q4

REPORT INFORMATION
  Report Type: Spontaneous
  Country: JP (occurrence: JP)
  Receive Date: 20211119
  Receipt Date: 20211119
  Transmission Date: 20220304
  Serious: Yes (Other)
  Sender: FDA-Public Use
  Company Number: JP-SUN PHARMACEUTICAL INDUSTRIES LTD-2021RR-318081

PATIENT
  Age: 65 Year
  Sex: Male

DRUGS (1)
  1. ESOMEPRAZOLE [Suspect]
     Active Substance: ESOMEPRAZOLE
     Indication: Gastric antral vascular ectasia
     Dosage: 20 MILLIGRAM, DAILY
     Route: 065

REACTIONS (3)
  - Hypergastrinaemia [Recovering/Resolving]
  - Iron deficiency anaemia [Recovered/Resolved]
  - Gastric polyps [Recovered/Resolved]
